FAERS Safety Report 16877256 (Version 1)
Quarter: 2019Q4

REPORT INFORMATION
  Report Type: Spontaneous
  Country: US (occurrence: US)
  Receive Date: 20191002
  Receipt Date: 20191002
  Transmission Date: 20200122
  Serious: Yes (Hospitalization)
  Sender: FDA-Public Use
  Company Number: None

PATIENT
  Age: 63 Year
  Sex: Male
  Weight: 98.1 kg

DRUGS (8)
  1. GABAPENTIN 100MG [Concomitant]
     Active Substance: GABAPENTIN
     Dates: start: 20180926, end: 20180926
  2. CEFAZOLIN 2G [Concomitant]
     Dates: start: 20180926, end: 20180926
  3. CELECOXIB 100MG [Concomitant]
     Active Substance: CELECOXIB
     Dates: start: 20180926, end: 20180926
  4. ACETAMINOPHEN 1G [Concomitant]
     Dates: start: 20180926, end: 20180926
  5. LIDOCAINE. [Suspect]
     Active Substance: LIDOCAINE
     Indication: POSTOPERATIVE ANALGESIA
     Dosage: ?          OTHER FREQUENCY:1.5 MG/MIN;?
     Route: 041
     Dates: start: 20180926, end: 20180926
  6. DIAZEPAM 5MG [Concomitant]
     Active Substance: DIAZEPAM
     Dates: start: 20180926, end: 20180926
  7. HYDROMORPHONE 0.25MG [Concomitant]
     Dates: start: 20180926, end: 20180926
  8. ONDANSETRON 4MG [Concomitant]
     Active Substance: ONDANSETRON
     Dates: start: 20180926, end: 20180926

REACTIONS (1)
  - Diplopia [None]

NARRATIVE: CASE EVENT DATE: 20180926
